FAERS Safety Report 16360259 (Version 1)
Quarter: 2019Q2

REPORT INFORMATION
  Report Type: Spontaneous
  Country: US (occurrence: US)
  Receive Date: 20190528
  Receipt Date: 20190528
  Transmission Date: 20190711
  Serious: No
  Sender: FDA-Public Use
  Company Number: US-MACLEODS PHARMACEUTICALS US LTD-MAC2019021313

PATIENT

DRUGS (4)
  1. VENLAFAXINE 37.5 MG CAPSULES [Suspect]
     Active Substance: VENLAFAXINE HYDROCHLORIDE
     Indication: ANXIETY
     Dosage: UNK (ZYDUS)
     Route: 065
     Dates: start: 201903
  2. VENLAFAXINE 37.5 MG CAPSULES [Suspect]
     Active Substance: VENLAFAXINE HYDROCHLORIDE
     Indication: ANGER
     Dosage: 37.5 MILLIGRAM, QD (ZYDUS)
     Route: 048
     Dates: start: 2018
  3. VENLAFAXINE (ZYDUS) 37.5 MG CAPSULES [Suspect]
     Active Substance: VENLAFAXINE HYDROCHLORIDE
     Indication: ANGER
     Dosage: 37.5 MILLIGRAM, QD
     Route: 048
     Dates: start: 2004
  4. VENLAFAXINE (ZYDUS) 37.5 MG CAPSULES [Suspect]
     Active Substance: VENLAFAXINE HYDROCHLORIDE
     Indication: ANXIETY

REACTIONS (3)
  - Tinnitus [Not Recovered/Not Resolved]
  - Ear discomfort [Not Recovered/Not Resolved]
  - Product substitution issue [Not Recovered/Not Resolved]
